FAERS Safety Report 6339058-1 (Version None)
Quarter: 2009Q3

REPORT INFORMATION
  Report Type: 
  Country: None (occurrence: None)
  Receive Date: 20090903
  Receipt Date: 20090828
  Transmission Date: 20100115
  Serious: Yes (Hospitalization, Other)
  Sender: FDA-Public Use
  Company Number: US-BAYER-200927860GPV

PATIENT
  Age: 70 Year
  Sex: Male
  Weight: 100 kg

DRUGS (6)
  1. SORAFENIB [Suspect]
     Indication: METASTATIC RENAL CELL CARCINOMA
     Dosage: TOTAL DAILY DOSE: 800 MG
     Route: 048
     Dates: start: 20090730, end: 20090806
  2. SORAFENIB [Suspect]
     Route: 048
     Dates: start: 20090805, end: 20090805
  3. LISINOPRIL [Concomitant]
     Indication: HYPERTENSION
     Dates: start: 20090120
  4. TERAZOSIN [Concomitant]
     Indication: BENIGN PROSTATIC HYPERPLASIA
     Dates: start: 20080101
  5. CARBAMAZEPINE [Concomitant]
     Indication: EPILEPSY
     Dates: start: 20020101, end: 20080814
  6. KEPPRA [Concomitant]
     Indication: EPILEPSY
     Dates: start: 20090806

REACTIONS (2)
  - ELECTROCARDIOGRAM ABNORMAL [None]
  - MUSCULOSKELETAL CHEST PAIN [None]
